FAERS Safety Report 7318466-6 (Version None)
Quarter: 2011Q1

REPORT INFORMATION
  Report Type: 
  Country: None (occurrence: None)
  Receive Date: 20110228
  Receipt Date: 20110222
  Transmission Date: 20110831
  Serious: Yes (Other)
  Sender: FDA-Public Use
  Company Number: US-PFIZER INC-2011038920

PATIENT
  Sex: Male
  Weight: 102 kg

DRUGS (7)
  1. NEBIVOLOL [Concomitant]
     Dosage: UNK
  2. RHINOCORT [Concomitant]
     Dosage: UNK
  3. CELEBREX [Suspect]
     Indication: ARTHRALGIA
     Dosage: 200 MG, DAILY
     Route: 048
     Dates: start: 20110220
  4. NEXIUM [Concomitant]
     Dosage: UNK
  5. MONTELUKAST [Concomitant]
     Dosage: UNK
  6. CLARINEX [Concomitant]
     Dosage: UNK
  7. BENICAR [Concomitant]
     Dosage: UNK

REACTIONS (4)
  - HYPOGLYCAEMIA [None]
  - DIZZINESS [None]
  - DRUG INEFFECTIVE [None]
  - SOMNOLENCE [None]
